FAERS Safety Report 8105403-X (Version None)
Quarter: 2012Q1

REPORT INFORMATION
  Report Type: 
  Country: None (occurrence: None)
  Receive Date: 20120201
  Receipt Date: 20120124
  Transmission Date: 20120608
  Serious: Yes (Hospitalization)
  Sender: FDA-Public Use
  Company Number: US-PURDUE-USA-2012-0081458

PATIENT
  Sex: Female

DRUGS (1)
  1. OXYCONTIN [Suspect]
     Indication: BACK PAIN
     Dosage: 40 MG, SEE TEXT

REACTIONS (5)
  - TOOTH INFECTION [None]
  - ARTHRITIS INFECTIVE [None]
  - ANIMAL BITE [None]
  - WOUND [None]
  - INFECTION [None]
